FAERS Safety Report 7957179-4 (Version None)
Quarter: 2011Q4

REPORT INFORMATION
  Report Type: 
  Country: None (occurrence: None)
  Receive Date: 20111205
  Receipt Date: 20111014
  Transmission Date: 20120403
  Serious: Yes (Hospitalization)
  Sender: FDA-Public Use
  Company Number: IT-ROCHE-785350

PATIENT
  Sex: Male
  Weight: 72 kg

DRUGS (5)
  1. OXALIPLATIN [Suspect]
     Indication: COLORECTAL CANCER METASTATIC
     Route: 042
     Dates: start: 20100224, end: 20100324
  2. XELODA [Suspect]
     Indication: COLORECTAL CANCER METASTATIC
     Route: 048
     Dates: start: 20100224, end: 20100324
  3. ASACOL [Concomitant]
     Indication: DIARRHOEA
     Dosage: 1600 MG DAILY
     Route: 048
  4. AVASTIN [Suspect]
     Indication: COLORECTAL CANCER METASTATIC
     Route: 042
     Dates: start: 20100224, end: 20100324
  5. IRINOTECAN HCL [Suspect]
     Indication: COLORECTAL CANCER METASTATIC
     Route: 042
     Dates: start: 20100224, end: 20100324

REACTIONS (2)
  - SUBILEUS [None]
  - INTERVERTEBRAL DISC PROTRUSION [None]
